FAERS Safety Report 7660348-4 (Version None)
Quarter: 2011Q3

REPORT INFORMATION
  Report Type: 
  Country: None (occurrence: None)
  Receive Date: 20110805
  Receipt Date: 20110801
  Transmission Date: 20111222
  Serious: Yes (Life-Threatening, Hospitalization, Other)
  Sender: FDA-Public Use
  Company Number: FR-ABBOTT-11P-056-0726358-00

PATIENT
  Sex: Female

DRUGS (13)
  1. ACETAMINOPHEN [Concomitant]
     Indication: PRODUCT USED FOR UNKNOWN INDICATION
     Dosage: AS NEEDED
     Dates: start: 20110317, end: 20110405
  2. PREZISTA [Interacting]
     Indication: HIV TEST POSITIVE
     Dosage: 800 MG DAILY
     Route: 048
     Dates: end: 20110407
  3. TRUVADA [Interacting]
     Indication: HIV TEST POSITIVE
     Dosage: 1 - 200MG/245 MG TABLET DAILY
     Route: 048
     Dates: end: 20110405
  4. EMEND [Concomitant]
     Indication: CHEMOTHERAPY
     Route: 048
     Dates: start: 20110318, end: 20110319
  5. DEXAMETHASONE SODIUM PHOSPHATE [Concomitant]
     Indication: HIV TEST POSITIVE
     Dosage: ONE DOSE PER STAGE
     Route: 042
     Dates: start: 20110318, end: 20110319
  6. NEXIUM [Concomitant]
     Indication: PRODUCT USED FOR UNKNOWN INDICATION
     Route: 048
     Dates: start: 20110317
  7. NORVIR [Suspect]
     Indication: HIV TEST POSITIVE
     Route: 048
     Dates: end: 20110407
  8. BACTRIM [Interacting]
     Indication: PRODUCT USED FOR UNKNOWN INDICATION
     Dosage: 1 DF DAILY
     Route: 048
     Dates: start: 20110317
  9. TRABECTEDIN [Interacting]
     Indication: SARCOMA UTERUS
     Dosage: 1,5 MG/M2 BY CYCLE
     Route: 042
     Dates: start: 20110318, end: 20110318
  10. OESTRODOSE [Concomitant]
     Indication: PRODUCT USED FOR UNKNOWN INDICATION
     Route: 061
  11. ONDANSETRON [Concomitant]
     Indication: HIV TEST POSITIVE
     Route: 042
     Dates: start: 20110318, end: 20110319
  12. VOGALENE [Concomitant]
     Indication: CHEMOTHERAPY
     Dosage: IF  NAUSEA
     Dates: start: 20110317
  13. EPIVIR [Concomitant]
     Indication: HIV TEST POSITIVE
     Dosage: UNKNOWN
     Dates: start: 20110405, end: 20110407

REACTIONS (13)
  - COUGH [None]
  - PANCYTOPENIA [None]
  - DYSPNOEA [None]
  - LYMPHANGIOSIS CARCINOMATOSA [None]
  - RENAL FAILURE ACUTE [None]
  - HEPATIC ENZYME INCREASED [None]
  - GENERAL PHYSICAL HEALTH DETERIORATION [None]
  - DRUG INTERACTION [None]
  - ABDOMINAL PAIN UPPER [None]
  - RHABDOMYOLYSIS [None]
  - PAINFUL RESPIRATION [None]
  - ANURIA [None]
  - CHEST PAIN [None]
